FAERS Safety Report 24061917 (Version 9)
Quarter: 2025Q3

REPORT INFORMATION
  Report Type: Spontaneous
  Country: US (occurrence: US)
  Receive Date: 20240708
  Receipt Date: 20250903
  Transmission Date: 20251020
  Serious: Yes (Hospitalization)
  Sender: PFIZER
  Company Number: US-PFIZER INC-PV202400088613

PATIENT
  Age: 57 Year
  Sex: Female

DRUGS (4)
  1. TUKYSA [Suspect]
     Active Substance: TUCATINIB
     Indication: Breast cancer female
     Dosage: ONE TABLET OF THE 150MG TWICE A DAY WITH ONE TABLET OF THE 50MG TWICE A DAY
  2. CAPECITABINE [Suspect]
     Active Substance: CAPECITABINE
  3. DULOXETINE [Concomitant]
     Active Substance: DULOXETINE
  4. ZOLOFT [Concomitant]
     Active Substance: SERTRALINE HYDROCHLORIDE

REACTIONS (7)
  - Pneumonia [Unknown]
  - Dyspnoea [Unknown]
  - COVID-19 [Not Recovered/Not Resolved]
  - Malaise [Not Recovered/Not Resolved]
  - Renal function test abnormal [Unknown]
  - Arthropathy [Not Recovered/Not Resolved]
  - Wrong technique in product usage process [Unknown]
